FAERS Safety Report 4974202-X (Version None)
Quarter: 2006Q2

REPORT INFORMATION
  Report Type: 
  Country: None (occurrence: None)
  Receive Date: 20060417
  Receipt Date: 20051221
  Transmission Date: 20061013
  Serious: Yes (Hospitalization, Disabling)
  Sender: FDA-Public Use
  Company Number: US-MERCK-0512USA03413

PATIENT
  Sex: Male
  Weight: 127 kg

DRUGS (22)
  1. VIOXX [Suspect]
     Indication: ARTHRITIS
     Route: 048
     Dates: start: 19991201, end: 20030801
  2. VIOXX [Suspect]
     Route: 048
     Dates: start: 19991201, end: 20030801
  3. VIOXX [Suspect]
     Route: 048
     Dates: start: 19991201, end: 20030801
  4. VIOXX [Suspect]
     Route: 048
     Dates: start: 19991201, end: 20030801
  5. ALTACE [Concomitant]
     Indication: BLOOD PRESSURE
     Route: 065
     Dates: start: 19990101, end: 20010101
  6. DYAZIDE [Concomitant]
     Indication: BLOOD PRESSURE
     Route: 065
     Dates: start: 19990101, end: 20010101
  7. AMOXIL [Concomitant]
     Route: 065
  8. PERCOCET [Concomitant]
     Indication: ARTHRALGIA
     Route: 065
     Dates: start: 20000101, end: 20030401
  9. VITAPLEX PLUS [Concomitant]
     Route: 065
  10. COUMADIN [Concomitant]
     Indication: HIP ARTHROPLASTY
     Route: 065
     Dates: start: 20000101
  11. VICODIN [Concomitant]
     Indication: ARTHRALGIA
     Route: 065
     Dates: start: 20001201, end: 20020101
  12. METOPROLOL [Concomitant]
     Indication: BLOOD PRESSURE
     Route: 065
  13. NORVASC [Concomitant]
     Indication: BLOOD PRESSURE
     Route: 065
     Dates: start: 20010801
  14. ZOCOR [Concomitant]
     Indication: BLOOD CHOLESTEROL
     Route: 048
     Dates: start: 20010801, end: 20050101
  15. PLAVIX [Concomitant]
     Route: 065
     Dates: start: 20010801, end: 20010101
  16. ISOSORBIDE [Concomitant]
     Route: 065
  17. AUGMENTIN '125' [Concomitant]
     Route: 065
  18. TRIMOX [Concomitant]
     Route: 065
  19. BETAMETHASONE DIPROPIONATE AND CLOTRIMAZOLE [Concomitant]
     Route: 065
  20. LOPRESSOR [Concomitant]
     Indication: BLOOD PRESSURE
     Route: 065
     Dates: start: 20010801, end: 20030201
  21. TOPROL-XL [Concomitant]
     Route: 065
     Dates: start: 20010101
  22. LOTREL [Concomitant]
     Indication: HYPERTENSION
     Route: 065
     Dates: start: 20010801

REACTIONS (9)
  - ARTERIOSCLEROSIS [None]
  - BLOOD GLUCOSE INCREASED [None]
  - CELLULITIS [None]
  - HEART RATE IRREGULAR [None]
  - HYPERLIPIDAEMIA [None]
  - MYOCARDIAL INFARCTION [None]
  - OSTEOARTHRITIS [None]
  - PRESCRIBED OVERDOSE [None]
  - SYNCOPE [None]
